FAERS Safety Report 21355204 (Version 3)
Quarter: 2022Q4

REPORT INFORMATION
  Report Type: Spontaneous
  Country: JP (occurrence: JP)
  Receive Date: 20220920
  Receipt Date: 20221212
  Transmission Date: 20230112
  Serious: No
  Sender: FDA-Public Use
  Company Number: JP-MSD-M2022-39715

PATIENT
  Age: 69 Year
  Sex: Male

DRUGS (7)
  1. LAGEVRIO [Suspect]
     Active Substance: MOLNUPIRAVIR
     Indication: COVID-19 treatment
     Dosage: 800 MILLIGRAM, BID
     Route: 048
     Dates: start: 20220909, end: 20220911
  2. TACROLIMUS [Concomitant]
     Active Substance: TACROLIMUS
     Indication: Renal failure
     Dosage: UNK
     Route: 065
     Dates: start: 2011
  3. TACROLIMUS [Concomitant]
     Active Substance: TACROLIMUS
     Indication: Renal transplant
  4. MEDROL [Concomitant]
     Active Substance: METHYLPREDNISOLONE
     Indication: Renal failure
     Dosage: UNK
     Route: 065
     Dates: start: 2011
  5. MEDROL [Concomitant]
     Active Substance: METHYLPREDNISOLONE
     Indication: Renal transplant
  6. CELLCEPT [Concomitant]
     Active Substance: MYCOPHENOLATE MOFETIL
     Indication: Prophylaxis
     Dosage: UNK
     Route: 065
  7. RABEPRAZOLE SODIUM [Concomitant]
     Active Substance: RABEPRAZOLE SODIUM
     Indication: Prophylaxis
     Dosage: UNK
     Route: 065

REACTIONS (3)
  - Eczema [Recovered/Resolved]
  - Haematoma [Recovered/Resolved]
  - Gamma-glutamyltransferase increased [Unknown]

NARRATIVE: CASE EVENT DATE: 20220101
